FAERS Safety Report 6245921-2 (Version None)
Quarter: 2009Q2

REPORT INFORMATION
  Report Type: 
  Country: None (occurrence: None)
  Receive Date: 20090626
  Receipt Date: 20080714
  Transmission Date: 20091009
  Serious: No
  Sender: FDA-Public Use
  Company Number: A0737739A

PATIENT
  Age: 57 Year
  Sex: Male

DRUGS (5)
  1. IMITREX [Suspect]
     Indication: MIGRAINE
     Dosage: 100MG AS REQUIRED
     Route: 048
  2. IMITREX [Suspect]
  3. NORTRIPTYLINE HCL [Concomitant]
  4. NADOLOL [Concomitant]
  5. NEXIUM [Concomitant]

REACTIONS (3)
  - NASAL POLYPS [None]
  - SINUS DISORDER [None]
  - SINUS OPERATION [None]
